FAERS Safety Report 4582651-7 (Version None)
Quarter: 2005Q1

REPORT INFORMATION
  Report Type: 
  Country: None (occurrence: None)
  Receive Date: 20050215
  Receipt Date: 20050211
  Transmission Date: 20050727
  Serious: Yes (Hospitalization)
  Sender: FDA-Public Use
  Company Number: NL-MERCK-0502NLD00027

PATIENT
  Age: 74 Year
  Sex: Male

DRUGS (3)
  1. [THERAPY UNSPECIFIED] [Concomitant]
     Route: 048
     Dates: start: 20040526
  2. PROSCAR [Suspect]
     Indication: HAEMATURIA
     Route: 048
     Dates: start: 20040914
  3. ROFECOXIB [Concomitant]
     Route: 048
     Dates: start: 20040813, end: 20040927

REACTIONS (2)
  - COAGULATION TIME SHORTENED [None]
  - THROMBOSIS [None]
